FAERS Safety Report 18384249 (Version 2)
Quarter: 2020Q4

REPORT INFORMATION
  Report Type: Spontaneous
  Country: RU (occurrence: RU)
  Receive Date: 20201014
  Receipt Date: 20201204
  Transmission Date: 20210114
  Serious: Yes (Death, Life-Threatening)
  Sender: FDA-Public Use
  Company Number: RU-GE HEALTHCARE LIFE SCIENCES-2020CSU005194

PATIENT

DRUGS (2)
  1. OMNIPAQUE [Suspect]
     Active Substance: IOHEXOL
     Indication: METASTATIC NEOPLASM
  2. OMNIPAQUE [Suspect]
     Active Substance: IOHEXOL
     Indication: ANGIOGRAM
     Dosage: 70 ML, SINGLE
     Route: 042
     Dates: start: 20201006, end: 20201006

REACTIONS (7)
  - Pulmonary embolism [Fatal]
  - Cardio-respiratory arrest [Fatal]
  - Cough [Recovered/Resolved]
  - Cyanosis [Not Recovered/Not Resolved]
  - Loss of consciousness [Not Recovered/Not Resolved]
  - Acute coronary syndrome [Fatal]
  - Asthenia [Recovered/Resolved]

NARRATIVE: CASE EVENT DATE: 20201006
